FAERS Safety Report 7072363-2 (Version None)
Quarter: 2010Q4

REPORT INFORMATION
  Report Type: 
  Country: None (occurrence: None)
  Receive Date: 20101029
  Receipt Date: 20100118
  Transmission Date: 20110411
  Serious: No
  Sender: FDA-Public Use
  Company Number: A0839947A

PATIENT
  Age: 76 Year
  Sex: Female

DRUGS (18)
  1. ADVAIR DISKUS 100/50 [Suspect]
     Indication: ASTHMA
     Dosage: 1PUFF TWICE PER DAY
     Route: 055
     Dates: start: 20091201
  2. COSOPT [Concomitant]
  3. TRAVATAN [Concomitant]
  4. MICARDIS [Concomitant]
  5. ALDACTONE [Concomitant]
  6. OMEPRAZOLE [Concomitant]
  7. SIMVASTATIN [Concomitant]
  8. FAMOTIDINE [Concomitant]
  9. CITALOPRAM HYDROBROMIDE [Concomitant]
  10. FOSAMAX [Concomitant]
  11. LORAZEPAM [Concomitant]
  12. PROMETHAZINE [Concomitant]
  13. DAILY VITAMIN [Concomitant]
  14. VITAMIN D [Concomitant]
  15. CO Q10 [Concomitant]
  16. CALCIUM + D [Concomitant]
  17. COL-RITE [Concomitant]
  18. COUMADIN [Concomitant]

REACTIONS (2)
  - COUGH [None]
  - DYSPHONIA [None]
